FAERS Safety Report 5629983-9 (Version None)
Quarter: 2008Q1

REPORT INFORMATION
  Report Type: 
  Country: None (occurrence: None)
  Receive Date: 20080213
  Receipt Date: 20080128
  Transmission Date: 20080703
  Serious: Yes (Hospitalization)
  Sender: FDA-Public Use
  Company Number: TPG2008A00016

PATIENT
  Age: 68 Year
  Sex: Male

DRUGS (8)
  1. ACTOS [Suspect]
     Indication: TYPE 2 DIABETES MELLITUS
     Dosage: 30 MG (30 MG, 1 IN 1 D) PER ORAL
     Route: 048
     Dates: start: 20070702, end: 20070718
  2. SERUMLIPIDREDUCING AGENTS          (SERUMLIPIDREDUCING AGENTS) [Concomitant]
  3. BETA BLOCKING AGENTS       (BETA BLOCKING AGENTS) [Concomitant]
  4. ANTIHYPERTENSIVES      (ANTIHYPERTENSIVES) [Concomitant]
  5. TILI COMP         (NALOXONE HYDROCHLORIDE, TILIDINE HYDROCHLORIDE) [Concomitant]
  6. MARCUMAR [Concomitant]
  7. IBUPROFEN [Concomitant]
  8. ....... [Concomitant]

REACTIONS (9)
  - APPENDICITIS [None]
  - ARTERIAL OCCLUSIVE DISEASE [None]
  - BUNDLE BRANCH BLOCK LEFT [None]
  - CARDIAC FAILURE [None]
  - CROHN'S DISEASE [None]
  - DIABETES MELLITUS INADEQUATE CONTROL [None]
  - ELECTROLYTE IMBALANCE [None]
  - GASTRITIS ATROPHIC [None]
  - HYPERTENSION [None]
